FAERS Safety Report 11614460 (Version 3)
Quarter: 2016Q1

REPORT INFORMATION
  Report Type: Report from Study
  Country: US (occurrence: US)
  Receive Date: 20151009
  Receipt Date: 20160310
  Transmission Date: 20160525
  Serious: Yes (Other)
  Sender: FDA-Public Use
  Company Number: PHHY2015US027465

PATIENT
  Age: 44 Year
  Sex: Female

DRUGS (2)
  1. GILENYA [Suspect]
     Active Substance: FINGOLIMOD HYDROCHLORIDE
     Indication: MULTIPLE SCLEROSIS
     Dosage: UNK
     Route: 048
  2. LYRICA [Concomitant]
     Active Substance: PREGABALIN
     Indication: PARAESTHESIA
     Dosage: UNK
     Route: 065
     Dates: start: 20150513

REACTIONS (8)
  - Dysaesthesia [Recovered/Resolved]
  - Balance disorder [Recovered/Resolved]
  - Weight decreased [Recovered/Resolved]
  - Fall [Unknown]
  - Hypoaesthesia [Not Recovered/Not Resolved]
  - Depression [Recovered/Resolved]
  - Skin abrasion [Recovered/Resolved]
  - Suicidal ideation [Recovered/Resolved]

NARRATIVE: CASE EVENT DATE: 20150202
